FAERS Safety Report 5010584-0 (Version None)
Quarter: 2006Q2

REPORT INFORMATION
  Report Type: 
  Country: None (occurrence: None)
  Receive Date: 20060524
  Receipt Date: 20060524
  Transmission Date: 20061013
  Serious: Yes (Hospitalization)
  Sender: FDA-Public Use
  Company Number: None

PATIENT
  Age: 87 Year
  Sex: Female

DRUGS (1)
  1. METOLAZONE [Suspect]
     Dosage: 2.5 MG BID PO
     Route: 048

REACTIONS (1)
  - PANCREATITIS ACUTE [None]
